FAERS Safety Report 12962120 (Version 2)
Quarter: 2017Q1

REPORT INFORMATION
  Report Type: Report from Study
  Country: None (occurrence: US)
  Receive Date: 20161121
  Receipt Date: 20170202
  Transmission Date: 20170428
  Serious: Yes (Other)
  Sender: FDA-Public Use
  Company Number: US-ABBVIE-16K-163-1786566-00

PATIENT
  Sex: Male
  Weight: 108.51 kg

DRUGS (3)
  1. MOBIC [Concomitant]
     Active Substance: MELOXICAM
     Indication: PAIN
  2. TOPIRAMATE. [Concomitant]
     Active Substance: TOPIRAMATE
     Indication: PRODUCT USED FOR UNKNOWN INDICATION
  3. HUMIRA [Suspect]
     Active Substance: ADALIMUMAB
     Indication: ANKYLOSING SPONDYLITIS
     Route: 058
     Dates: start: 2007, end: 201609

REACTIONS (3)
  - Asbestosis [Unknown]
  - Uveitis [Recovered/Resolved]
  - Brain neoplasm benign [Not Recovered/Not Resolved]

NARRATIVE: CASE EVENT DATE: 2012
